FAERS Safety Report 6993060-5 (Version None)
Quarter: 2010Q3

REPORT INFORMATION
  Report Type: 
  Country: None (occurrence: None)
  Receive Date: 20100917
  Receipt Date: 20090930
  Transmission Date: 20110219
  Serious: No
  Sender: FDA-Public Use
  Company Number: US-ASTRAZENECA-2009SE17138

PATIENT
  Age: 79 Year
  Sex: Female
  Weight: 62.6 kg

DRUGS (4)
  1. SEROQUEL XR [Suspect]
     Indication: SLEEP DISORDER
     Route: 048
     Dates: start: 20090925, end: 20090926
  2. SEROQUEL XR [Suspect]
     Route: 048
     Dates: start: 20090928, end: 20090929
  3. AMBIEN [Concomitant]
  4. VALIUM [Concomitant]
     Dosage: AS REQUIRED

REACTIONS (3)
  - ARTHRALGIA [None]
  - DIZZINESS [None]
  - DRUG INEFFECTIVE [None]
